FAERS Safety Report 8140782-9 (Version None)
Quarter: 2012Q1

REPORT INFORMATION
  Report Type: 
  Country: None (occurrence: None)
  Receive Date: 20120216
  Receipt Date: 20120207
  Transmission Date: 20120608
  Serious: Yes (Other)
  Sender: FDA-Public Use
  Company Number: US-BRISTOL-MYERS SQUIBB COMPANY-16388589

PATIENT
  Age: 64 Year
  Sex: Female
  Weight: 82 kg

DRUGS (2)
  1. ONGLYZA [Suspect]
     Indication: TYPE 2 DIABETES MELLITUS
  2. KOMBIGLYZE XR [Suspect]
     Indication: TYPE 2 DIABETES MELLITUS
     Dosage: KOMBIGLYZE XR 5/500

REACTIONS (6)
  - ABDOMINAL PAIN [None]
  - VOMITING [None]
  - DIZZINESS [None]
  - NAUSEA [None]
  - DIARRHOEA [None]
  - ASTHENIA [None]
